FAERS Safety Report 4708012-5 (Version None)
Quarter: 2005Q3

REPORT INFORMATION
  Report Type: 
  Country: None (occurrence: None)
  Receive Date: 20050707
  Receipt Date: 20050627
  Transmission Date: 20060218
  Serious: Yes (Other)
  Sender: FDA-Public Use
  Company Number: US-BRISTOL-MYERS SQUIBB COMPANY-13017181

PATIENT
  Age: 45 Year
  Sex: Female

DRUGS (2)
  1. CYCLOPHOSPHAMIDE [Suspect]
     Indication: BREAST CANCER
  2. DOXORUBICIN HCL [Suspect]
     Indication: BREAST CANCER

REACTIONS (1)
  - SCLERODERMA [None]
